FAERS Safety Report 5186269-7 (Version None)
Quarter: 2006Q4

REPORT INFORMATION
  Report Type: 
  Country: None (occurrence: None)
  Receive Date: 20061212
  Receipt Date: 20061120
  Transmission Date: 20070319
  Serious: Yes (Death, Hospitalization)
  Sender: FDA-Public Use
  Company Number: US200608006647

PATIENT
  Age: 86 Year
  Sex: Female
  Weight: 49 kg

DRUGS (14)
  1. FORTEO [Suspect]
     Indication: OSTEOPOROSIS
     Dates: start: 20041110, end: 20060713
  2. FORTEO [Concomitant]
  3. DARVOCET-N 100 [Concomitant]
  4. TYLENOL /USA/ (PARACETAMOL) [Concomitant]
  5. LIDODERM [Concomitant]
  6. ESTROGENS SOL/INJ [Concomitant]
  7. PLAVIX [Concomitant]
  8. BETAXOLOL (BETAXOLOL HYDROCHLORIDE) [Concomitant]
  9. REMICADE [Concomitant]
  10. PREDNISONE TAB [Concomitant]
  11. METHOTREXATE [Concomitant]
  12. OXYBUTYNIN CHLORIDE [Concomitant]
  13. OMEPRAZOLE [Concomitant]
  14. PROPOXYPHENE (HCL) (PROPOXYPHENE HYDROCHLORIDE) [Concomitant]

REACTIONS (12)
  - ACTIVITIES OF DAILY LIVING IMPAIRED [None]
  - ANHEDONIA [None]
  - ANOREXIA [None]
  - ASTHENIA [None]
  - BLOOD TEST ABNORMAL [None]
  - CEREBROVASCULAR ACCIDENT [None]
  - FALL [None]
  - GENERAL PHYSICAL HEALTH DETERIORATION [None]
  - HIP FRACTURE [None]
  - MEMORY IMPAIRMENT [None]
  - MUSCULAR WEAKNESS [None]
  - ORAL INTAKE REDUCED [None]
